FAERS Safety Report 9103528 (Version 4)
Quarter: 2014Q1

REPORT INFORMATION
  Report Type: Spontaneous
  Country: US (occurrence: US)
  Receive Date: 20130218
  Receipt Date: 20140203
  Transmission Date: 20141002
  Serious: Yes (Other)
  Sender: FDA-Public Use
  Company Number: US-GLAXOSMITHKLINE-A1009217A

PATIENT
  Age: 77 Year
  Sex: Female

DRUGS (2)
  1. VOTRIENT [Suspect]
     Indication: PRODUCT USED FOR UNKNOWN INDICATION
     Dosage: 800MG PER DAY
     Route: 048
     Dates: start: 20111105
  2. BLOOD PRESSURE MEDICATION [Suspect]
     Indication: BLOOD PRESSURE

REACTIONS (5)
  - Loss of consciousness [Recovered/Resolved]
  - Malaise [Unknown]
  - Dizziness [Recovering/Resolving]
  - Asthenia [Unknown]
  - Underdose [Unknown]
